FAERS Safety Report 18030425 (Version 5)
Quarter: 2021Q3

REPORT INFORMATION
  Report Type: Spontaneous
  Country: US (occurrence: US)
  Receive Date: 20200715
  Receipt Date: 20210817
  Transmission Date: 20211014
  Serious: Yes (Other)
  Sender: FDA-Public Use
  Company Number: US-GILEAD-2020-0482543

PATIENT
  Sex: Female

DRUGS (2)
  1. VIREAD [Suspect]
     Active Substance: TENOFOVIR DISOPROXIL FUMARATE
     Indication: HIV INFECTION
     Dosage: UNK
     Route: 048
     Dates: start: 2004, end: 2018
  2. TRUVADA [Suspect]
     Active Substance: EMTRICITABINE\TENOFOVIR DISOPROXIL FUMARATE
     Indication: HIV INFECTION
     Dosage: UNK
     Route: 048
     Dates: start: 2005, end: 20181115

REACTIONS (8)
  - Renal injury [Unknown]
  - Multiple fractures [Unknown]
  - Blood creatinine increased [Recovered/Resolved]
  - Chronic kidney disease [Unknown]
  - Protein total abnormal [Recovered/Resolved]
  - Renal injury [Recovered/Resolved]
  - Skeletal injury [Unknown]
  - Renal failure [Unknown]
